FAERS Safety Report 4890094-1 (Version None)
Quarter: 2006Q1

REPORT INFORMATION
  Report Type: 
  Country: None (occurrence: None)
  Receive Date: 20060124
  Receipt Date: 20050901
  Transmission Date: 20060701
  Serious: Yes (Other)
  Sender: FDA-Public Use
  Company Number: US-AMGEN-US148875

PATIENT
  Sex: Male

DRUGS (6)
  1. ENBREL [Suspect]
     Indication: RHEUMATOID ARTHRITIS
     Route: 058
     Dates: start: 20041101, end: 20050927
  2. PLAQUENIL [Concomitant]
     Dates: start: 20040201
  3. ARAVA [Concomitant]
     Dates: start: 20040301
  4. MOBIC [Concomitant]
  5. SYNTHROID [Concomitant]
  6. ZANTAC [Concomitant]

REACTIONS (3)
  - B-CELL SMALL LYMPHOCYTIC LYMPHOMA [None]
  - LEUKOCYTOSIS [None]
  - TOOTH INFECTION [None]
